FAERS Safety Report 25626845 (Version 1)
Quarter: 2025Q3

REPORT INFORMATION
  Report Type: Spontaneous
  Country: EU (occurrence: EU)
  Receive Date: 20250731
  Receipt Date: 20250731
  Transmission Date: 20251020
  Serious: Yes (Hospitalization, Other)
  Sender: ITALFARMACO SPA
  Company Number: EU-ITALFARMACO SPA-2181577

PATIENT
  Age: 67 Year
  Sex: Male
  Weight: 75 kg

DRUGS (2)
  1. RILUZOLE [Suspect]
     Active Substance: RILUZOLE
     Indication: Upper motor neurone lesion
  2. RILUZOLE [Suspect]
     Active Substance: RILUZOLE
     Indication: Amyotrophic lateral sclerosis

REACTIONS (8)
  - Pancreatitis acute [Recovered/Resolved]
  - Abdominal tenderness [Recovered/Resolved]
  - Pancreatic enzymes increased [Unknown]
  - Pain [Unknown]
  - Abdominal pain upper [Unknown]
  - Weight decreased [Recovered/Resolved]
  - General physical health deterioration [Recovered/Resolved]
  - Anaemia [Recovered/Resolved]
